FAERS Safety Report 9821177 (Version 1)
Quarter: 2014Q1

REPORT INFORMATION
  Report Type: Spontaneous
  Country: US (occurrence: US)
  Receive Date: 20140116
  Receipt Date: 20140116
  Transmission Date: 20141002
  Serious: Yes (Hospitalization, Other)
  Sender: FDA-Public Use
  Company Number: US-RB-062545-14

PATIENT
  Age: 0 None
  Sex: Female

DRUGS (6)
  1. SUBOXONE FILM [Suspect]
     Indication: DRUG DEPENDENCE
     Dosage: SUBOXONE FILM
     Route: 064
     Dates: start: 20130327, end: 2013
  2. SUBUTEX [Suspect]
     Indication: DRUG DEPENDENCE
     Route: 064
     Dates: start: 2013, end: 20131218
  3. NEURONTIN [Concomitant]
     Indication: NEURALGIA
     Dosage: FURTHER DOSING DETAILS UNKNOWN
     Route: 064
     Dates: start: 20130327, end: 20131218
  4. PRENATAL VITAMINS [Concomitant]
     Indication: PRENATAL CARE
     Dosage: 1 TABLET DAILY; FURTHER DOSING DETAILS UNKNOWN
     Route: 064
     Dates: start: 2013, end: 20131218
  5. SEROQUIL [Concomitant]
     Indication: DEPRESSION
     Route: 064
     Dates: start: 201311, end: 20131218
  6. XANAX [Concomitant]
     Indication: ANXIETY
     Route: 064
     Dates: start: 2013, end: 20131218

REACTIONS (3)
  - Feeding disorder neonatal [Unknown]
  - Drug withdrawal syndrome neonatal [Recovered/Resolved]
  - Foetal exposure during pregnancy [Recovered/Resolved]
